FAERS Safety Report 25802103 (Version 1)
Quarter: 2025Q3

REPORT INFORMATION
  Report Type: Spontaneous
  Country: US (occurrence: US)
  Receive Date: 20250915
  Receipt Date: 20250915
  Transmission Date: 20251021
  Serious: No
  Sender: ABBVIE
  Company Number: US-ABBVIE-6452907

PATIENT
  Age: 69 Year
  Sex: Male
  Weight: 82.553 kg

DRUGS (1)
  1. VYALEV [Suspect]
     Active Substance: FOSCARBIDOPA\FOSLEVODOPA
     Indication: Parkinson^s disease
     Route: 058
     Dates: start: 20250715

REACTIONS (7)
  - Infusion site vesicles [Recovering/Resolving]
  - Infusion site mass [Recovering/Resolving]
  - Infusion site erythema [Recovering/Resolving]
  - Infusion site infection [Recovering/Resolving]
  - Infusion site hyperaesthesia [Recovering/Resolving]
  - Infusion site discharge [Recovering/Resolving]
  - Infusion site induration [Recovering/Resolving]

NARRATIVE: CASE EVENT DATE: 20250906
